FAERS Safety Report 20247361 (Version 7)
Quarter: 2022Q1

REPORT INFORMATION
  Report Type: Spontaneous
  Country: US (occurrence: US)
  Receive Date: 20211229
  Receipt Date: 20220223
  Transmission Date: 20220423
  Serious: Yes (Other)
  Sender: FDA-Public Use
  Company Number: US-UNITED THERAPEUTICS-UNT-2021-025906

PATIENT
  Age: 67 Year
  Sex: Male

DRUGS (6)
  1. TYVASO [Suspect]
     Active Substance: TREPROSTINIL
     Indication: Pulmonary arterial hypertension
     Dosage: UNK
     Dates: start: 20211207
  2. TYVASO [Suspect]
     Active Substance: TREPROSTINIL
     Dosage: 18-72 ?G, QID
     Dates: start: 202112
  3. TYVASO [Suspect]
     Active Substance: TREPROSTINIL
     Dosage: UNK
     Dates: start: 202112
  4. TYVASO [Suspect]
     Active Substance: TREPROSTINIL
     Dosage: 30 ?G
  5. TYVASO [Suspect]
     Active Substance: TREPROSTINIL
     Dosage: UNK
  6. LISINOPRIL [Suspect]
     Active Substance: LISINOPRIL
     Indication: Product used for unknown indication
     Dosage: UNK
     Route: 065

REACTIONS (16)
  - Pneumothorax [Unknown]
  - Urinary retention [Unknown]
  - Dyspnoea [Unknown]
  - Heart rate increased [Unknown]
  - Hypotension [Unknown]
  - Rhinorrhoea [Not Recovered/Not Resolved]
  - Hypertension [Unknown]
  - Diarrhoea [Unknown]
  - Oropharyngeal pain [Unknown]
  - Oedema peripheral [Unknown]
  - Cough [Unknown]
  - Fatigue [Unknown]
  - Urinary hesitation [Unknown]
  - Asthenia [Unknown]
  - Productive cough [Unknown]
  - Headache [Unknown]

NARRATIVE: CASE EVENT DATE: 20211201
